FAERS Safety Report 4690217-3 (Version None)
Quarter: 2005Q2

REPORT INFORMATION
  Report Type: 
  Country: None (occurrence: None)
  Receive Date: 20050614
  Receipt Date: 20050614
  Transmission Date: 20051028
  Serious: No
  Sender: FDA-Public Use
  Company Number: None

PATIENT
  Age: 74 Year
  Sex: Male
  Weight: 92.9874 kg

DRUGS (2)
  1. SUPHEDRINE  30MG PSEUDOEPHEDRINE  SAFEWAY INC [Suspect]
  2. SUPHEDRINE 60MG PSEUDOEPHEDRINE SAVON-OSCO [Suspect]

REACTIONS (1)
  - MEDICATION ERROR [None]
